FAERS Safety Report 12469462 (Version 4)
Quarter: 2016Q4

REPORT INFORMATION
  Report Type: Report from Study
  Country: US (occurrence: US)
  Receive Date: 20160615
  Receipt Date: 20161118
  Transmission Date: 20170207
  Serious: Yes (Hospitalization)
  Sender: FDA-Public Use
  Company Number: US-ACTELION-A-NJ2016-137599

PATIENT
  Age: 61 Year
  Sex: Female

DRUGS (2)
  1. ADCIRCA [Concomitant]
     Active Substance: TADALAFIL
  2. TRACLEER [Suspect]
     Active Substance: BOSENTAN
     Indication: PULMONARY ARTERIAL HYPERTENSION
     Dosage: 125 MG, BID
     Route: 048
     Dates: start: 20130313

REACTIONS (7)
  - Pain in extremity [Unknown]
  - Mastectomy [Unknown]
  - Arthralgia [Unknown]
  - Chemotherapy [Unknown]
  - Tooth loss [Unknown]
  - Breast cancer [Unknown]
  - Vomiting [Unknown]
